FAERS Safety Report 4499807-4 (Version None)
Quarter: 2004Q4

REPORT INFORMATION
  Report Type: 
  Country: None (occurrence: None)
  Receive Date: 20041104
  Receipt Date: 20041020
  Transmission Date: 20050328
  Serious: Yes (Hospitalization)
  Sender: FDA-Public Use
  Company Number: 601592

PATIENT
  Age: 67 Year
  Sex: Female
  Weight: 53.5244 kg

DRUGS (3)
  1. GAMMAGARD S/D [Suspect]
     Indication: CHRONIC INFLAMMATORY DEMYELINATING POLYRADICULONEUROPATHY
     Dosage: 20 GM, INTRAVENOUS
     Route: 042
     Dates: start: 20030101
  2. BENADRYL ^WARNER-LAMBERT^ [Concomitant]
  3. DECADRON [Concomitant]

REACTIONS (4)
  - BLOOD PRESSURE SYSTOLIC INCREASED [None]
  - CHEST PAIN [None]
  - INFUSION RELATED REACTION [None]
  - MYOCARDIAL INFARCTION [None]
